FAERS Safety Report 10770195 (Version 1)
Quarter: 2015Q1

REPORT INFORMATION
  Report Type: Spontaneous
  Country: SE (occurrence: SE)
  Receive Date: 20150206
  Receipt Date: 20150206
  Transmission Date: 20150721
  Serious: Yes (Other)
  Sender: FDA-Public Use
  Company Number: SE-ABBVIE-15K-150-1340923-00

PATIENT
  Age: 71 Year
  Sex: Female

DRUGS (1)
  1. HUMIRA [Suspect]
     Active Substance: ADALIMUMAB
     Indication: RHEUMATOID ARTHRITIS
     Route: 065
     Dates: start: 201207, end: 20140918

REACTIONS (4)
  - Lichenoid keratosis [Unknown]
  - Pruritus generalised [Recovering/Resolving]
  - Rash generalised [Recovered/Resolved]
  - Palpable purpura [Unknown]

NARRATIVE: CASE EVENT DATE: 2014
